FAERS Safety Report 8204631-2 (Version None)
Quarter: 2012Q1

REPORT INFORMATION
  Report Type: 
  Country: None (occurrence: None)
  Receive Date: 20120313
  Receipt Date: 20120229
  Transmission Date: 20120608
  Serious: Yes (Hospitalization, Other)
  Sender: FDA-Public Use
  Company Number: US-ELI_LILLY_AND_COMPANY-US201203000652

PATIENT
  Sex: Female

DRUGS (19)
  1. MULTI-VITAMIN [Concomitant]
  2. ADVAIR DISKUS 100/50 [Concomitant]
  3. CELEBREX [Concomitant]
  4. PREDNISONE [Concomitant]
  5. COLESTIPOL HYDROCHLORIDE [Concomitant]
  6. SINGULAIR [Concomitant]
  7. SPIRIVA [Concomitant]
  8. COREG [Concomitant]
  9. COUMADIN [Concomitant]
  10. NEURONTIN [Concomitant]
  11. FORTEO [Suspect]
     Indication: OSTEOPOROSIS
     Dosage: 20 UG, QD
     Route: 065
  12. FLONASE [Concomitant]
     Route: 045
  13. VITAMIN B-12 [Concomitant]
  14. FORTEO [Suspect]
     Dosage: 20 UG, QD
     Route: 065
  15. CALCIUM [Concomitant]
  16. PLAQUENIL [Concomitant]
  17. MECLIZINE [Concomitant]
  18. PRILOSEC [Concomitant]
  19. ASTEPRO [Concomitant]
     Route: 045

REACTIONS (7)
  - CHEST DISCOMFORT [None]
  - PSEUDOMONAS INFECTION [None]
  - RESPIRATORY TRACT INFECTION FUNGAL [None]
  - FALL [None]
  - HAEMORRHAGE [None]
  - FRACTURED COCCYX [None]
  - PLEURAL EFFUSION [None]
